FAERS Safety Report 6017630-6 (Version None)
Quarter: 2008Q4

REPORT INFORMATION
  Report Type: 
  Country: None (occurrence: None)
  Receive Date: 20081223
  Receipt Date: 20081215
  Transmission Date: 20090506
  Serious: Yes (Other)
  Sender: FDA-Public Use
  Company Number: US-ABBOTT-08P-163-0493120-00

PATIENT
  Sex: Female

DRUGS (4)
  1. HUMIRA [Suspect]
     Indication: RHEUMATOID ARTHRITIS
     Dosage: SWITCHED TO PEN
     Route: 058
     Dates: start: 20060801, end: 20080201
  2. HUMIRA [Suspect]
     Route: 058
     Dates: start: 20081101
  3. HUMIRA [Suspect]
     Dosage: SYRINGE
     Dates: start: 20050101, end: 20060801
  4. LEVOTHYROXINE SODIUM [Concomitant]
     Indication: DRUG USE FOR UNKNOWN INDICATION

REACTIONS (4)
  - CAESAREAN SECTION [None]
  - DRUG DELIVERY SYSTEM MALFUNCTION [None]
  - DRUG EXPOSURE DURING PREGNANCY [None]
  - INCORRECT DOSE ADMINISTERED [None]
